FAERS Safety Report 14567956 (Version 1)
Quarter: 2018Q1

REPORT INFORMATION
  Report Type: Report from Study
  Country: ES (occurrence: ES)
  Receive Date: 20180223
  Receipt Date: 20180223
  Transmission Date: 20180509
  Serious: Yes (Hospitalization)
  Sender: FDA-Public Use
  Company Number: ES-TEVA-2018-ES-859114

PATIENT
  Age: 77 Year
  Sex: Male

DRUGS (6)
  1. AUGMENTINE PLUS 1.000 MG/62,5 MG [Interacting]
     Active Substance: AMOXICILLIN\CLAVULANIC ACID
     Indication: TOOTH ABSCESS
     Route: 048
     Dates: start: 20160116, end: 20160123
  2. ENALAPRIL MALEATO (2142MA) [Concomitant]
     Indication: HYPERTENSION
     Route: 048
     Dates: start: 200510
  3. PARACETAMOL (12A) [Concomitant]
     Active Substance: ACETAMINOPHEN
     Indication: TOOTH ABSCESS
     Route: 048
     Dates: start: 20160116, end: 20160123
  4. URBASON 16 MG COMPRIMIDOS, 30 COMPRIMIDOS (METHYLPREDNISOLONE) [Concomitant]
     Active Substance: METHYLPREDNISOLONE
     Indication: TOOTH ABSCESS
     Route: 048
     Dates: start: 20160116, end: 20160125
  5. SIMVASTATINA (1023A) [Suspect]
     Active Substance: SIMVASTATIN
     Indication: DYSLIPIDAEMIA
     Route: 048
     Dates: start: 201511, end: 20160211
  6. ADIRO 100 MG COMPRIMIDOS GASTRORRESISTENTES EFG [Concomitant]
     Active Substance: ASPIRIN
     Route: 048
     Dates: start: 201405

REACTIONS (2)
  - Drug interaction [Unknown]
  - Hepatitis cholestatic [Recovered/Resolved]

NARRATIVE: CASE EVENT DATE: 20160201
